FAERS Safety Report 4344177-5 (Version None)
Quarter: 2004Q2

REPORT INFORMATION
  Report Type: 
  Country: None (occurrence: None)
  Receive Date: 20040419
  Receipt Date: 20040415
  Transmission Date: 20050107
  Serious: Yes (Hospitalization)
  Sender: FDA-Public Use
  Company Number: 2002-09-1425

PATIENT
  Age: 48 Year
  Sex: Male

DRUGS (8)
  1. REBETOL [Suspect]
     Indication: HEPATITIS C
     Dosage: 800 MG QD ORAL
     Route: 048
     Dates: start: 20020409, end: 20020912
  2. INTRON A [Suspect]
     Indication: HEPATITIS C
     Dosage: 6 MU QD-TIW INTRAMUSCULAR
     Route: 030
     Dates: start: 20020409, end: 20020911
  3. URSODEOXYCHOLIC ACID [Concomitant]
  4. ADALAT [Concomitant]
  5. LOSARTAN POTASSUM [Concomitant]
  6. INDOMETHACIN [Concomitant]
  7. MAGNESIUM OXIDE [Concomitant]
  8. SELBEX [Concomitant]

REACTIONS (5)
  - AORTIC DILATATION [None]
  - CEREBRAL INFARCTION [None]
  - HAEMATOCRIT DECREASED [None]
  - HAEMOGLOBIN DECREASED [None]
  - RED BLOOD CELL COUNT DECREASED [None]
